FAERS Safety Report 24280241 (Version 2)
Quarter: 2025Q2

REPORT INFORMATION
  Report Type: Spontaneous
  Country: IN (occurrence: IN)
  Receive Date: 20240904
  Receipt Date: 20250421
  Transmission Date: 20250717
  Serious: No
  Sender: ABBVIE
  Company Number: IN-ABBVIE-5901627

PATIENT

DRUGS (1)
  1. OZURDEX [Suspect]
     Active Substance: DEXAMETHASONE
     Indication: Product used for unknown indication
     Route: 050

REACTIONS (1)
  - No adverse event [Unknown]
